FAERS Safety Report 12637626 (Version 1)
Quarter: 2016Q3

REPORT INFORMATION
  Report Type: Spontaneous
  Country: US (occurrence: US)
  Receive Date: 20160809
  Receipt Date: 20160809
  Transmission Date: 20161109
  Serious: No
  Sender: FDA-Public Use
  Company Number: US-ABBVIE-94P-163-0040244-00

PATIENT
  Age: 25 Year
  Sex: Male
  Weight: 74.91 kg

DRUGS (5)
  1. DEPAKOTE [Suspect]
     Active Substance: DIVALPROEX SODIUM
  2. DEPAKOTE [Suspect]
     Active Substance: DIVALPROEX SODIUM
  3. DEPAKOTE [Suspect]
     Active Substance: DIVALPROEX SODIUM
     Indication: CLUSTER HEADACHE
     Route: 048
     Dates: start: 199403
  4. DEPAKOTE [Suspect]
     Active Substance: DIVALPROEX SODIUM
  5. DEPAKOTE [Suspect]
     Active Substance: DIVALPROEX SODIUM

REACTIONS (9)
  - Toxicity to various agents [Recovered/Resolved]
  - Frustration tolerance decreased [Unknown]
  - Incorrect dose administered [Recovered/Resolved]
  - Stress [Unknown]
  - Drug level increased [Recovered/Resolved]
  - Malaise [Recovered/Resolved]
  - Off label use [Recovered/Resolved]
  - Pain [Unknown]
  - Anxiety [Unknown]

NARRATIVE: CASE EVENT DATE: 199409
